FAERS Safety Report 23926531 (Version 1)
Quarter: 2024Q2

REPORT INFORMATION
  Report Type: Spontaneous
  Country: US (occurrence: None)
  Receive Date: 20240531
  Receipt Date: 20240531
  Transmission Date: 20240715
  Serious: Yes (Death)
  Sender: FDA-Public Use
  Company Number: None

PATIENT
  Age: 57 Year
  Sex: Female
  Weight: 42.8 kg

DRUGS (5)
  1. TAGRISSO [Suspect]
     Active Substance: OSIMERTINIB
     Indication: Lung neoplasm malignant
     Dosage: 80 MG DAILY ORAL
     Route: 048
     Dates: start: 20210407, end: 20240520
  2. Vitamin D 1000 [Concomitant]
  3. VITAMINS [Concomitant]
     Active Substance: VITAMINS
  4. CALCIUM [Concomitant]
     Active Substance: CALCIUM
  5. prochlorperazine 5mg [Concomitant]

REACTIONS (2)
  - Lung neoplasm malignant [None]
  - Malignant neoplasm progression [None]

NARRATIVE: CASE EVENT DATE: 20240520
